FAERS Safety Report 24064038 (Version 1)
Quarter: 2024Q3

REPORT INFORMATION
  Report Type: Spontaneous
  Country: GB (occurrence: GB)
  Receive Date: 20240709
  Receipt Date: 20240709
  Transmission Date: 20241016
  Serious: Yes (Other)
  Sender: RANBAXY
  Company Number: GB-SUN PHARMACEUTICAL INDUSTRIES LTD-2024RR-455402

PATIENT
  Age: 50 Year
  Sex: Male

DRUGS (6)
  1. TRABECTEDIN [Suspect]
     Active Substance: TRABECTEDIN
     Indication: Liposarcoma
     Dosage: 1.5 MILLIGRAM/SQ. METER, 1 DOSE/3 WEEKS
  2. DOXORUBICIN [Suspect]
     Active Substance: DOXORUBICIN
     Indication: Liposarcoma
     Dosage: UNK
     Route: 065
     Dates: start: 2013
  3. GEMCITABINE [Suspect]
     Active Substance: GEMCITABINE
     Indication: Liposarcoma
     Dosage: PHASE III
     Route: 065
     Dates: start: 2013
  4. DOCETAXEL [Suspect]
     Active Substance: DOCETAXEL\DOCETAXEL ANHYDROUS
     Indication: Liposarcoma
     Dosage: PHASE III
  5. FUROSEMIDE [Suspect]
     Active Substance: FUROSEMIDE
     Indication: Hypervolaemia
     Dosage: 40 MILLIGRAM, DAILY
  6. FUROSEMIDE [Suspect]
     Active Substance: FUROSEMIDE
     Dosage: 20 MILLIGRAM, DAILY

REACTIONS (6)
  - Disease progression [Unknown]
  - Neutropenic sepsis [Recovered/Resolved]
  - Dyspnoea [Unknown]
  - Acute kidney injury [Unknown]
  - Hyponatraemia [Unknown]
  - Cardiotoxicity [Unknown]

NARRATIVE: CASE EVENT DATE: 20180101
